FAERS Safety Report 25278337 (Version 4)
Quarter: 2025Q3

REPORT INFORMATION
  Report Type: Spontaneous
  Country: EU (occurrence: EU)
  Receive Date: 20250507
  Receipt Date: 20250912
  Transmission Date: 20251020
  Serious: Yes (Death, Life-Threatening, Hospitalization, Other)
  Sender: AUROBINDO
  Company Number: EU-AFSSAPS-RN2025000351

PATIENT
  Age: 59 Year
  Sex: Female
  Weight: 68 kg

DRUGS (8)
  1. MIRTAZAPINE [Suspect]
     Active Substance: MIRTAZAPINE
     Indication: Depression
     Route: 048
     Dates: start: 20230411, end: 20230411
  2. ZOPICLONE [Suspect]
     Active Substance: ZOPICLONE
     Indication: Product used for unknown indication
     Route: 048
     Dates: start: 20230411, end: 20230411
  3. OXAZEPAM [Suspect]
     Active Substance: OXAZEPAM
     Indication: Anxiety disorder
     Route: 048
     Dates: start: 20230411, end: 20230411
  4. ACETAMINOPHEN [Suspect]
     Active Substance: ACETAMINOPHEN
     Indication: Product used for unknown indication
     Route: 048
     Dates: start: 20230411, end: 20230411
  5. VENLAFAXINE [Suspect]
     Active Substance: VENLAFAXINE HYDROCHLORIDE
     Indication: Depression
     Route: 048
  6. OXAZEPAM [Suspect]
     Active Substance: OXAZEPAM
     Indication: Product used for unknown indication
     Route: 048
     Dates: start: 20230411, end: 20230411
  7. MIDAZOLAM [Concomitant]
     Active Substance: MIDAZOLAM
     Indication: Sedation
     Route: 065
  8. SUFENTANIL [Concomitant]
     Active Substance: SUFENTANIL
     Indication: Sedation
     Route: 065

REACTIONS (12)
  - Coma [Fatal]
  - Multiple organ dysfunction syndrome [Fatal]
  - Completed suicide [Fatal]
  - Acute respiratory distress syndrome [Fatal]
  - Shock [Fatal]
  - Hypothermia [Fatal]
  - Miosis [Fatal]
  - Serotonin syndrome [Fatal]
  - Bezoar [Fatal]
  - Electrocardiogram QT prolonged [Fatal]
  - Intentional overdose [Fatal]
  - Toxicity to various agents [Fatal]

NARRATIVE: CASE EVENT DATE: 20230411
